FAERS Safety Report 6966100-7 (Version None)
Quarter: 2010Q3

REPORT INFORMATION
  Report Type: 
  Country: None (occurrence: None)
  Receive Date: 20100903
  Receipt Date: 20100823
  Transmission Date: 20110219
  Serious: Yes (Hospitalization)
  Sender: FDA-Public Use
  Company Number: PHHY2010FR56539

PATIENT
  Sex: Female

DRUGS (1)
  1. VOLTAREN [Suspect]
     Indication: PAIN
     Dosage: 2 TABLETS
     Route: 048
     Dates: start: 19860101

REACTIONS (7)
  - ABDOMINAL PAIN [None]
  - ANGIOEDEMA [None]
  - DYSPNOEA [None]
  - LOSS OF CONSCIOUSNESS [None]
  - MALAISE [None]
  - NAUSEA [None]
  - VISION BLURRED [None]
